FAERS Safety Report 21088203 (Version 4)
Quarter: 2022Q4

REPORT INFORMATION
  Report Type: Spontaneous
  Country: US (occurrence: US)
  Receive Date: 20220715
  Receipt Date: 20221018
  Transmission Date: 20230113
  Serious: No
  Sender: FDA-Public Use
  Company Number: US-PFIZER INC-202200961460

PATIENT
  Age: 80 Year
  Sex: Female
  Weight: 60.771 kg

DRUGS (1)
  1. PAXLOVID [Suspect]
     Active Substance: NIRMATRELVIR\RITONAVIR
     Indication: COVID-19 treatment
     Dosage: TAKES 3 TABLETS IN THE MORNING AND 3 TABLETS AT NIGHT
     Route: 048
     Dates: start: 20220712

REACTIONS (2)
  - Insomnia [Unknown]
  - Diarrhoea [Unknown]

NARRATIVE: CASE EVENT DATE: 20220712
